FAERS Safety Report 18660557 (Version 1)
Quarter: 2020Q4

REPORT INFORMATION
  Report Type: Spontaneous
  Country: US (occurrence: US)
  Receive Date: 20201223
  Receipt Date: 20201223
  Transmission Date: 20210114
  Serious: Yes (Hospitalization, Disabling)
  Sender: FDA-Public Use
  Company Number: None

PATIENT
  Age: 37 Year
  Sex: Male
  Weight: 132.75 kg

DRUGS (3)
  1. PROTONIX [Suspect]
     Active Substance: PANTOPRAZOLE SODIUM
     Indication: GASTROOESOPHAGEAL REFLUX DISEASE
     Dosage: ?          QUANTITY:1 CAPSULE(S);?
     Route: 048
     Dates: start: 20180101, end: 20201223
  2. OMEPRAZOLE. [Suspect]
     Active Substance: OMEPRAZOLE
  3. DAILY VITAMIN [Concomitant]
     Active Substance: VITAMINS

REACTIONS (8)
  - Palpitations [None]
  - Gastric ulcer [None]
  - Chest pain [None]
  - Pain [None]
  - Vomiting [None]
  - Anxiety [None]
  - Regurgitation [None]
  - Headache [None]

NARRATIVE: CASE EVENT DATE: 20200301
